FAERS Safety Report 4289343-2 (Version None)
Quarter: 2004Q1

REPORT INFORMATION
  Report Type: 
  Country: None (occurrence: None)
  Receive Date: 20040203
  Receipt Date: 20030729
  Transmission Date: 20041129
  Serious: Yes (Other)
  Sender: FDA-Public Use
  Company Number: 200321512BWH

PATIENT
  Age: 19 Year
  Sex: Male

DRUGS (2)
  1. AVELOX [Suspect]
     Indication: CELLULITIS
     Dosage: 400 MG, ONCE, ORAL
     Route: 048
     Dates: start: 20030701
  2. AVELOX [Suspect]
     Indication: INFECTION
     Dosage: 400 MG, ONCE, ORAL
     Route: 048
     Dates: start: 20030701

REACTIONS (4)
  - ANAPHYLACTIC REACTION [None]
  - RESPIRATORY DISTRESS [None]
  - SWELLING [None]
  - URTICARIA [None]
